FAERS Safety Report 8404675-1 (Version None)
Quarter: 2012Q2

REPORT INFORMATION
  Report Type: 
  Country: None (occurrence: None)
  Receive Date: 20120601
  Receipt Date: 20120528
  Transmission Date: 20120825
  Serious: Yes (Death, Hospitalization)
  Sender: FDA-Public Use
  Company Number: IT-ASTRAZENECA-2012SE29921

PATIENT
  Age: 26596 Day
  Sex: Male

DRUGS (11)
  1. ASPIRIN [Suspect]
     Indication: THROMBOSIS PROPHYLAXIS
     Route: 042
     Dates: start: 20120411
  2. ENOXAPARIN SODIUM [Suspect]
     Indication: THROMBOSIS PROPHYLAXIS
     Dosage: 1 DF 4000 UI INJECTAL SOLUTION
     Route: 058
     Dates: start: 20120412, end: 20120416
  3. CEFAZOLIN [Concomitant]
     Indication: URINARY TRACT INFECTION
     Route: 048
     Dates: start: 20120409
  4. OMEPRAZOLE [Concomitant]
     Route: 042
  5. POTASSIUM CANRENOATE [Concomitant]
     Dates: start: 20120412
  6. LASIX [Concomitant]
     Dosage: 20 MG/2 ML INJECTAL SOLUTION
     Route: 042
  7. BRILINTA [Suspect]
     Indication: THROMBOSIS PROPHYLAXIS
     Route: 048
     Dates: start: 20120409, end: 20120416
  8. ENOXAPARIN SODIUM [Suspect]
     Indication: THROMBOSIS PROPHYLAXIS
     Dosage: 8000 UI AXA/0.8 ML INJECTAL SOLUTION
     Route: 058
     Dates: start: 20120411, end: 20120411
  9. ACETAMINOPHEN [Concomitant]
     Dosage: 10 MG/ML SOLUTION FOR INFUSION
     Route: 041
  10. RAMIPRIL [Concomitant]
     Route: 048
     Dates: start: 20120415
  11. MADOPAR [Concomitant]
     Indication: PARKINSONISM
     Dosage: 200 MG + 50 MG TABLET
     Route: 048

REACTIONS (4)
  - DEATH [None]
  - ANAEMIA [None]
  - HAEMATURIA [None]
  - PHARYNGEAL HAEMORRHAGE [None]
